FAERS Safety Report 15402406 (Version 2)
Quarter: 2019Q1

REPORT INFORMATION
  Report Type: Spontaneous
  Country: JP (occurrence: JP)
  Receive Date: 20180919
  Receipt Date: 20190208
  Transmission Date: 20190417
  Serious: Yes (Other)
  Sender: FDA-Public Use
  Company Number: JP-PFIZER INC-2018366804

PATIENT

DRUGS (2)
  1. LYRICA [Suspect]
     Active Substance: PREGABALIN
     Dosage: UNK
     Route: 048
  2. BI SIFROL [Suspect]
     Active Substance: PRAMIPEXOLE
     Dosage: UNK
     Route: 048

REACTIONS (6)
  - Stress fracture [Unknown]
  - Hypoaesthesia [Unknown]
  - Fall [Unknown]
  - Burning sensation [Unknown]
  - Dizziness [Unknown]
  - Tremor [Unknown]
